FAERS Safety Report 23850653 (Version 1)
Quarter: 2024Q2

REPORT INFORMATION
  Report Type: Spontaneous
  Country: US (occurrence: US)
  Receive Date: 20240513
  Receipt Date: 20240513
  Transmission Date: 20240715
  Serious: No
  Sender: FDA-Public Use
  Company Number: US-BIOGEN-2024BI01263924

PATIENT
  Age: 30 Year
  Sex: Female

DRUGS (1)
  1. ZURZUVAE [Suspect]
     Active Substance: ZURANOLONE
     Indication: Product used for unknown indication
     Route: 050
     Dates: start: 20240505

REACTIONS (3)
  - Depressive symptom [Unknown]
  - Bradykinesia [Unknown]
  - Dizziness [Unknown]

NARRATIVE: CASE EVENT DATE: 20240501
